FAERS Safety Report 7727099-9 (Version None)
Quarter: 2011Q3

REPORT INFORMATION
  Report Type: 
  Country: None (occurrence: None)
  Receive Date: 20110902
  Receipt Date: 20110826
  Transmission Date: 20111222
  Serious: Yes (Hospitalization, Other)
  Sender: FDA-Public Use
  Company Number: FR-JNJFOC-20080102964

PATIENT
  Age: 26 Year
  Sex: Female

DRUGS (1)
  1. INFLIXIMAB* [Suspect]
     Indication: CROHN'S DISEASE
     Route: 042
     Dates: start: 20060228

REACTIONS (1)
  - HODGKIN'S DISEASE [None]
